FAERS Safety Report 8279278-2 (Version None)
Quarter: 2012Q2

REPORT INFORMATION
  Report Type: 
  Country: None (occurrence: None)
  Receive Date: 20120412
  Receipt Date: 20120302
  Transmission Date: 20120825
  Serious: No
  Sender: FDA-Public Use
  Company Number: US-ASTRAZENECA-2010SE50138

PATIENT
  Age: 45 Year
  Sex: Female

DRUGS (3)
  1. NEXIUM [Suspect]
     Dosage: UNKNOWN DAILY
     Route: 048
  2. NEXIUM [Suspect]
     Dosage: UNKNOWN TWICE A DAY
     Route: 048
  3. ATACAND [Concomitant]

REACTIONS (6)
  - THERAPEUTIC RESPONSE DECREASED [None]
  - VOMITING [None]
  - DRUG EFFECT DECREASED [None]
  - OFF LABEL USE [None]
  - DYSPEPSIA [None]
  - DRUG DOSE OMISSION [None]
